FAERS Safety Report 8839338 (Version 1)
Quarter: 2012Q4

REPORT INFORMATION
  Report Type: Spontaneous
  Country: US (occurrence: None)
  Receive Date: 20121011
  Receipt Date: 20121011
  Transmission Date: 20130627
  Serious: Yes (Death)
  Sender: FDA-Public Use
  Company Number: None

PATIENT
  Age: 66 Year
  Sex: Male
  Weight: 68.04 kg

DRUGS (1)
  1. GEMZAR [Suspect]
     Indication: LUNG CANCER
     Dosage: 3 weeks on 1 off
     Route: 042

REACTIONS (1)
  - Pleural effusion [None]
